FAERS Safety Report 9706748 (Version 3)
Quarter: 2013Q4

REPORT INFORMATION
  Report Type: Spontaneous
  Country: SE (occurrence: SE)
  Receive Date: 20131125
  Receipt Date: 20131127
  Transmission Date: 20140711
  Serious: No
  Sender: FDA-Public Use
  Company Number: SE-AMGEN-SWESP2013080422

PATIENT
  Sex: Female

DRUGS (1)
  1. NEUPOGEN [Suspect]
     Indication: STEM CELL TRANSPLANT
     Dosage: 1 INJECTION DAILY
     Route: 065

REACTIONS (1)
  - Expired drug administered [Unknown]
